APPROVED DRUG PRODUCT: PROPRANOLOL HYDROCHLORIDE
Active Ingredient: PROPRANOLOL HYDROCHLORIDE
Strength: 60MG
Dosage Form/Route: TABLET;ORAL
Application: A072275 | Product #001
Applicant: MYLAN PHARMACEUTICALS INC
Approved: Jun 9, 1989 | RLD: No | RS: No | Type: DISCN